FAERS Safety Report 25032361 (Version 1)
Quarter: 2025Q1

REPORT INFORMATION
  Report Type: Spontaneous
  Country: CN (occurrence: CN)
  Receive Date: 20250303
  Receipt Date: 20250303
  Transmission Date: 20250409
  Serious: Yes (Other)
  Sender: MYLAN
  Company Number: CN-MYLANLABS-202101677054

PATIENT
  Age: 30 Year
  Sex: Male

DRUGS (12)
  1. ZOLOFT [Suspect]
     Active Substance: SERTRALINE HYDROCHLORIDE
     Indication: Anxiety
     Dosage: 2 DOSAGE FORM, QD (TWO TABLETS A DAY)
     Dates: start: 201909
  2. ZOLOFT [Suspect]
     Active Substance: SERTRALINE HYDROCHLORIDE
     Indication: Depression
     Dosage: 2 DOSAGE FORM, QD (TWO TABLETS A DAY)
     Route: 048
     Dates: start: 201909
  3. ZOLOFT [Suspect]
     Active Substance: SERTRALINE HYDROCHLORIDE
     Dosage: 2 DOSAGE FORM, QD (TWO TABLETS A DAY)
     Dates: start: 201909
  4. ZOLOFT [Suspect]
     Active Substance: SERTRALINE HYDROCHLORIDE
     Dosage: 2 DOSAGE FORM, QD (TWO TABLETS A DAY)
     Dates: start: 201909
  5. ZOLOFT [Suspect]
     Active Substance: SERTRALINE HYDROCHLORIDE
     Dosage: 2 DOSAGE FORM, QD (TWO TABLETS A DAY)
     Dates: start: 201909
  6. ZOLOFT [Suspect]
     Active Substance: SERTRALINE HYDROCHLORIDE
     Dosage: 2 DOSAGE FORM, QD (TWO TABLETS A DAY)
     Route: 048
     Dates: start: 201909
  7. ZOLOFT [Suspect]
     Active Substance: SERTRALINE HYDROCHLORIDE
     Dosage: 2 DOSAGE FORM, QD (TWO TABLETS A DAY)
     Route: 048
     Dates: start: 201909
  8. ZOLOFT [Suspect]
     Active Substance: SERTRALINE HYDROCHLORIDE
     Dosage: 2 DOSAGE FORM, QD (TWO TABLETS A DAY)
     Route: 048
     Dates: start: 201909
  9. ZOLOFT [Suspect]
     Active Substance: SERTRALINE HYDROCHLORIDE
     Route: 048
  10. ZOLOFT [Suspect]
     Active Substance: SERTRALINE HYDROCHLORIDE
     Route: 048
  11. ZOLOFT [Suspect]
     Active Substance: SERTRALINE HYDROCHLORIDE
  12. ZOLOFT [Suspect]
     Active Substance: SERTRALINE HYDROCHLORIDE

REACTIONS (14)
  - Suicidal ideation [Recovering/Resolving]
  - Discomfort [Recovering/Resolving]
  - Cardiac discomfort [Recovering/Resolving]
  - Nightmare [Recovering/Resolving]
  - Impaired work ability [Unknown]
  - Tinnitus [Recovering/Resolving]
  - Headache [Recovering/Resolving]
  - Nausea [Recovering/Resolving]
  - Hyperhidrosis [Recovering/Resolving]
  - Palpitations [Recovering/Resolving]
  - Nervousness [Unknown]
  - Insomnia [Recovering/Resolving]
  - Vomiting [Recovering/Resolving]
  - Drug withdrawal syndrome [Recovering/Resolving]
